FAERS Safety Report 6740085-0 (Version None)
Quarter: 2010Q2

REPORT INFORMATION
  Report Type: 
  Country: None (occurrence: None)
  Receive Date: 20100525
  Receipt Date: 20100302
  Transmission Date: 20101027
  Serious: No
  Sender: FDA-Public Use
  Company Number: A0843236A

PATIENT
  Sex: Female

DRUGS (2)
  1. BACTROBAN [Suspect]
     Indication: SCRATCH
     Route: 061
     Dates: start: 20100127
  2. BACTRIM [Concomitant]

REACTIONS (2)
  - HYPERSENSITIVITY [None]
  - URTICARIA [None]
